FAERS Safety Report 5019346-1 (Version None)
Quarter: 2006Q2

REPORT INFORMATION
  Report Type: 
  Country: None (occurrence: None)
  Receive Date: 20060606
  Receipt Date: 20060525
  Transmission Date: 20061013
  Serious: Yes (Other)
  Sender: FDA-Public Use
  Company Number: GB-BRISTOL-MYERS SQUIBB COMPANY-13390836

PATIENT
  Age: 63 Year
  Sex: Female
  Weight: 92 kg

DRUGS (2)
  1. TRIAMCINOLONE [Suspect]
     Indication: ASTHMA
     Dates: start: 20060412
  2. PREDNISOLONE [Suspect]
     Indication: ASTHMA
     Dosage: DOSE VALUE:  50 MG ON 08-APR-2006, THEN INCREASED TO 70 MG DAILY ON AN UNKNOWN DATE.
     Route: 048

REACTIONS (2)
  - DEPRESSION [None]
  - SUICIDAL IDEATION [None]
